FAERS Safety Report 23137516 (Version 1)
Quarter: 2023Q4

REPORT INFORMATION
  Report Type: Spontaneous
  Country: IN (occurrence: IN)
  Receive Date: 20231102
  Receipt Date: 20231102
  Transmission Date: 20240109
  Serious: Yes (Hospitalization, Other)
  Sender: FDA-Public Use
  Company Number: IN-EPICPHARMA-IN-2023EPCLIT01559

PATIENT
  Age: 29 Year
  Sex: Male

DRUGS (36)
  1. DICLOFENAC SODIUM [Suspect]
     Active Substance: DICLOFENAC\DICLOFENAC SODIUM
     Indication: Back pain
     Dosage: ON THE GLUTEAL MUSCLE
     Route: 030
  2. AZATHIOPRINE [Concomitant]
     Active Substance: AZATHIOPRINE
     Indication: Pemphigus
     Route: 065
  3. AZATHIOPRINE [Concomitant]
     Active Substance: AZATHIOPRINE
     Route: 065
  4. AZATHIOPRINE [Concomitant]
     Active Substance: AZATHIOPRINE
     Dosage: AS MAINTENANCE DOSE
     Route: 065
  5. AZATHIOPRINE [Concomitant]
     Active Substance: AZATHIOPRINE
     Dosage: AS MAINTENANCE DOSE
     Route: 065
  6. AZATHIOPRINE [Concomitant]
     Active Substance: AZATHIOPRINE
     Dosage: AS MAINTENANCE DOSE
     Route: 065
  7. AZATHIOPRINE [Concomitant]
     Active Substance: AZATHIOPRINE
     Dosage: AS MAINTENANCE DOSE
     Route: 065
  8. AZATHIOPRINE [Concomitant]
     Active Substance: AZATHIOPRINE
     Dosage: AS MAINTENANCE DOSE
     Route: 065
  9. AZATHIOPRINE [Concomitant]
     Active Substance: AZATHIOPRINE
     Dosage: AS MAINTENANCE DOSE
     Route: 065
  10. CEFTRIAXONE [Concomitant]
     Active Substance: CEFTRIAXONE\CEFTRIAXONE SODIUM
     Route: 042
  11. CEFTRIAXONE [Concomitant]
     Active Substance: CEFTRIAXONE\CEFTRIAXONE SODIUM
     Route: 042
  12. METRONIDAZOLE [Concomitant]
     Active Substance: METRONIDAZOLE
     Route: 042
  13. METRONIDAZOLE [Concomitant]
     Active Substance: METRONIDAZOLE
     Route: 042
  14. CLOBETASOL PROPIONATE;GENTAMICIN SULFATE [Concomitant]
     Indication: Pemphigus
     Route: 065
  15. CLOBETASOL PROPIONATE;GENTAMICIN SULFATE [Concomitant]
     Route: 065
  16. CLOBETASOL PROPIONATE;GENTAMICIN SULFATE [Concomitant]
     Route: 065
  17. SERTRALINE [Concomitant]
     Active Substance: SERTRALINE HYDROCHLORIDE
     Indication: Depression
     Route: 065
  18. SERTRALINE [Concomitant]
     Active Substance: SERTRALINE HYDROCHLORIDE
     Route: 065
  19. CLONAZEPAM [Concomitant]
     Active Substance: CLONAZEPAM
     Indication: Depression
     Route: 065
  20. CLONAZEPAM [Concomitant]
     Active Substance: CLONAZEPAM
     Route: 065
  21. CLONAZEPAM [Concomitant]
     Active Substance: CLONAZEPAM
     Route: 065
  22. CLONAZEPAM [Concomitant]
     Active Substance: CLONAZEPAM
     Route: 065
  23. CLONAZEPAM [Concomitant]
     Active Substance: CLONAZEPAM
     Route: 065
  24. CLONAZEPAM [Concomitant]
     Active Substance: CLONAZEPAM
     Route: 065
  25. PREDNISOLONE [Concomitant]
     Active Substance: PREDNISOLONE
     Indication: Pemphigus
     Route: 065
  26. DOXYCYCLINE [Concomitant]
     Active Substance: DOXYCYCLINE
     Indication: Pemphigus
     Route: 065
  27. AZITHROMYCIN [Concomitant]
     Active Substance: AZITHROMYCIN
     Indication: Pemphigus
     Route: 065
  28. ESCITALOPRAM [Concomitant]
     Active Substance: ESCITALOPRAM OXALATE
     Indication: Pemphigus
     Route: 065
  29. ESCITALOPRAM [Concomitant]
     Active Substance: ESCITALOPRAM OXALATE
     Route: 065
  30. ESCITALOPRAM [Concomitant]
     Active Substance: ESCITALOPRAM OXALATE
     Route: 065
  31. ESCITALOPRAM [Concomitant]
     Active Substance: ESCITALOPRAM OXALATE
     Route: 065
  32. DEXAMETHASONE [Concomitant]
     Active Substance: DEXAMETHASONE
     Indication: Pemphigus
     Route: 042
  33. DEXAMETHASONE [Concomitant]
     Active Substance: DEXAMETHASONE
     Route: 065
  34. CALCIUM [Concomitant]
     Active Substance: CALCIUM
     Indication: Pemphigus
     Route: 065
  35. FRAMYCETIN [Concomitant]
     Active Substance: FRAMYCETIN
     Indication: Pemphigus
     Route: 065
  36. POVIDONE-IODINE [Concomitant]
     Active Substance: POVIDONE-IODINE
     Indication: Pemphigus
     Dosage: 5% W/V SOLUTION IN 1:2 DILUTION
     Route: 065

REACTIONS (1)
  - Embolia cutis medicamentosa [Recovered/Resolved]
